FAERS Safety Report 10548400 (Version 1)
Quarter: 2014Q4

REPORT INFORMATION
  Report Type: Spontaneous
  Country: US (occurrence: US)
  Receive Date: 20141028
  Receipt Date: 20141028
  Transmission Date: 20150529
  Serious: Yes (Other)
  Sender: FDA-Public Use
  Company Number: US-ASTRAZENECA-2014SE80228

PATIENT
  Age: 23 Year
  Sex: Female
  Weight: 72.6 kg

DRUGS (2)
  1. DEPAKOTE [Concomitant]
     Active Substance: DIVALPROEX SODIUM
     Indication: SEIZURE
     Route: 048
     Dates: start: 2003
  2. QUETIAPINE FUMARATE. [Suspect]
     Active Substance: QUETIAPINE FUMARATE
     Indication: SLEEP DISORDER
     Dosage: BETWEEEN 600-800 MG AT NIGHT
     Route: 048
     Dates: start: 2006

REACTIONS (5)
  - Syncope [Unknown]
  - Dysphemia [Unknown]
  - Product use issue [Unknown]
  - Dyskinesia [Unknown]
  - Limb discomfort [Unknown]

NARRATIVE: CASE EVENT DATE: 2006
